FAERS Safety Report 18740501 (Version 1)
Quarter: 2021Q1

REPORT INFORMATION
  Report Type: Spontaneous
  Country: US (occurrence: US)
  Receive Date: 20210114
  Receipt Date: 20210114
  Transmission Date: 20210419
  Serious: Yes (Other)
  Sender: FDA-Public Use
  Company Number: US-BAYER-2021-016183

PATIENT
  Age: 72 Year
  Sex: Male
  Weight: 64.85 kg

DRUGS (8)
  1. MIRALAX [Suspect]
     Active Substance: POLYETHYLENE GLYCOL 3350
     Dosage: UNK
  2. ASPIRIN 81 [Suspect]
     Active Substance: ASPIRIN
     Dosage: 81 MG
  3. RYTARY [Concomitant]
     Active Substance: CARBIDOPA\LEVODOPA
     Dosage: 95 MG
     Dates: start: 20191121
  4. NOURIANZ [Concomitant]
     Active Substance: ISTRADEFYLLINE
  5. GOCOVRI [Suspect]
     Active Substance: AMANTADINE
     Indication: DYSKINESIA
     Dosage: 68.5 MG, QD
     Dates: start: 20190110, end: 20190711
  6. RYTARY [Concomitant]
     Active Substance: CARBIDOPA\LEVODOPA
     Dosage: 95 MG
     Dates: start: 20191120
  7. RYTARY [Concomitant]
     Active Substance: CARBIDOPA\LEVODOPA
     Dosage: 23.7 UNK
  8. BELSOMRA [Concomitant]
     Active Substance: SUVOREXANT

REACTIONS (16)
  - Urinary incontinence [Unknown]
  - Freezing phenomenon [Unknown]
  - Product dose omission issue [Unknown]
  - Blood urine present [Unknown]
  - Confusional state [Unknown]
  - Prostatic operation [Unknown]
  - Hallucinations, mixed [Unknown]
  - Anal incontinence [Unknown]
  - Parkinson^s disease [Unknown]
  - Dementia [Unknown]
  - Prostatomegaly [Unknown]
  - Bladder catheterisation [Unknown]
  - Bladder obstruction [Unknown]
  - Balance disorder [Unknown]
  - On and off phenomenon [Unknown]
  - Insomnia [Unknown]

NARRATIVE: CASE EVENT DATE: 20191108
